FAERS Safety Report 10605856 (Version 1)
Quarter: 2014Q4

REPORT INFORMATION
  Report Type: Spontaneous
  Country: US (occurrence: None)
  Receive Date: 20141121
  Receipt Date: 20141121
  Transmission Date: 20150529
  Serious: Yes (Other)
  Sender: FDA-Public Use
  Company Number: ADR-2014-02171

PATIENT
  Age: 67 Year
  Sex: Female

DRUGS (1)
  1. LIORESAL [Suspect]
     Active Substance: BACLOFEN
     Indication: MUSCLE SPASTICITY

REACTIONS (5)
  - Somnolence [None]
  - Depressed level of consciousness [None]
  - Transient ischaemic attack [None]
  - Dizziness [None]
  - Musculoskeletal stiffness [None]
